FAERS Safety Report 7352874-2 (Version None)
Quarter: 2011Q1

REPORT INFORMATION
  Report Type: 
  Country: None (occurrence: None)
  Receive Date: 20110315
  Receipt Date: 20110217
  Transmission Date: 20110831
  Serious: No
  Sender: FDA-Public Use
  Company Number: US-B.I. PHARMACEUTICALS,INC./RIDGEFIELD-2011-BP-07416BP

PATIENT
  Age: 72 Year
  Sex: Male

DRUGS (4)
  1. LEVOTHYROXINE [Concomitant]
     Indication: THYROID DISORDER
     Dosage: 25 MG
     Route: 048
     Dates: start: 20110213
  2. PRADAXA [Suspect]
     Indication: ATRIAL FIBRILLATION
     Dosage: 300 MG
     Route: 048
     Dates: start: 20110213
  3. LIVALO [Concomitant]
     Indication: BLOOD CHOLESTEROL
     Dosage: 2 MG
     Route: 048
     Dates: start: 20100101
  4. METOPROLOL [Concomitant]
     Indication: HYPERTENSION
     Dosage: 50 MG
     Route: 048
     Dates: start: 20110213

REACTIONS (2)
  - DYSPEPSIA [None]
  - BURNING SENSATION [None]
